FAERS Safety Report 20219194 (Version 1)
Quarter: 2021Q4

REPORT INFORMATION
  Report Type: Other
  Country: GB (occurrence: GB)
  Receive Date: 20211222
  Receipt Date: 20211222
  Transmission Date: 20220303
  Serious: Yes (Other)
  Sender: FDA-Public Use
  Company Number: GB-BoehringerIngelheim-2021-BI-134650

PATIENT

DRUGS (1)
  1. ALTEPLASE [Suspect]
     Active Substance: ALTEPLASE
     Indication: Portosplenomesenteric venous thrombosis
     Route: 050

REACTIONS (2)
  - Haemorrhage intracranial [Unknown]
  - Off label use [Unknown]
